FAERS Safety Report 9554488 (Version 2)
Quarter: 2013Q4

REPORT INFORMATION
  Report Type: Spontaneous
  Country: GB (occurrence: GB)
  Receive Date: 20130925
  Receipt Date: 20131004
  Transmission Date: 20140711
  Serious: Yes (Other)
  Sender: FDA-Public Use
  Company Number: GB-GILEAD-2013-0083953

PATIENT
  Sex: Male

DRUGS (1)
  1. EVIPLERA [Suspect]
     Indication: HIV INFECTION

REACTIONS (3)
  - Schizophrenia [Unknown]
  - Therapeutic response decreased [Unknown]
  - Drug ineffective [Unknown]
